FAERS Safety Report 15765675 (Version 2)
Quarter: 2019Q2

REPORT INFORMATION
  Report Type: Spontaneous
  Country: US (occurrence: US)
  Receive Date: 20181227
  Receipt Date: 20190517
  Transmission Date: 20190711
  Serious: Yes (Other)
  Sender: FDA-Public Use
  Company Number: US-SA-2018SA388525

PATIENT
  Age: 53 Year
  Sex: Female
  Weight: 111 kg

DRUGS (13)
  1. PLATINOL [Concomitant]
     Active Substance: CISPLATIN
  2. XANAX [Concomitant]
     Active Substance: ALPRAZOLAM
  3. GABAPENTIN. [Concomitant]
     Active Substance: GABAPENTIN
  4. WELLBUTRIN [Concomitant]
     Active Substance: BUPROPION HYDROCHLORIDE
  5. METOCLOPRAMIDE. [Concomitant]
     Active Substance: METOCLOPRAMIDE
  6. TRAMADOL. [Concomitant]
     Active Substance: TRAMADOL
  7. TAXOL [Concomitant]
     Active Substance: PACLITAXEL
  8. TAXOTERE [Suspect]
     Active Substance: DOCETAXEL
     Dosage: UNK UNK, UNK
     Route: 042
     Dates: start: 201507, end: 201507
  9. PARAPLATIN [Concomitant]
     Active Substance: CARBOPLATIN
  10. ZOFRAN [Concomitant]
     Active Substance: ONDANSETRON HYDROCHLORIDE
  11. TAXOTERE [Suspect]
     Active Substance: DOCETAXEL
     Indication: BREAST CANCER
     Dosage: UNK UNK, Q3W
     Route: 042
     Dates: start: 201503, end: 201503
  12. CYCLOBENZAPRINE. [Concomitant]
     Active Substance: CYCLOBENZAPRINE
  13. PROCHLORPERAZINE. [Concomitant]
     Active Substance: PROCHLORPERAZINE

REACTIONS (3)
  - Psychological trauma [Unknown]
  - Alopecia [Not Recovered/Not Resolved]
  - Emotional distress [Unknown]

NARRATIVE: CASE EVENT DATE: 2016
